FAERS Safety Report 7307415-2 (Version None)
Quarter: 2011Q1

REPORT INFORMATION
  Report Type: 
  Country: None (occurrence: None)
  Receive Date: 20110209
  Receipt Date: 20110124
  Transmission Date: 20110831
  Serious: Yes (Hospitalization)
  Sender: FDA-Public Use
  Company Number: 026915

PATIENT
  Age: 68 Year
  Sex: Male

DRUGS (3)
  1. LEVETIRACETAM [Suspect]
     Dosage: (200 MG)
  2. PHENOBARBITAL TAB [Concomitant]
  3. LAMOTRIGINE [Concomitant]

REACTIONS (3)
  - DISORIENTATION [None]
  - CONVULSION [None]
  - CENTRAL NERVOUS SYSTEM LESION [None]
